FAERS Safety Report 8236896-5 (Version None)
Quarter: 2012Q1

REPORT INFORMATION
  Report Type: 
  Country: None (occurrence: None)
  Receive Date: 20120327
  Receipt Date: 20110921
  Transmission Date: 20120608
  Serious: No
  Sender: FDA-Public Use
  Company Number: US-GLAXOSMITHKLINE-A0945467A

PATIENT
  Sex: Female

DRUGS (1)
  1. LUXIQ [Suspect]
     Indication: ALOPECIA
     Route: 061

REACTIONS (1)
  - ALOPECIA [None]
